FAERS Safety Report 24715425 (Version 1)
Quarter: 2024Q4

REPORT INFORMATION
  Report Type: Spontaneous
  Country: US (occurrence: US)
  Receive Date: 20241210
  Receipt Date: 20241210
  Transmission Date: 20250115
  Serious: Yes (Other)
  Sender: SANOFI AVENTIS
  Company Number: US-SANOFI-02328467

PATIENT
  Sex: Male

DRUGS (1)
  1. TZIELD [Suspect]
     Active Substance: TEPLIZUMAB-MZWV
     Dosage: 1 DF, QD; 1 VIAL PER DAY BASED ON THEIR BMI.
     Dates: start: 20241202

REACTIONS (7)
  - Seizure [Unknown]
  - Loss of consciousness [Unknown]
  - Eye movement disorder [Unknown]
  - Lethargy [Unknown]
  - Dehydration [Unknown]
  - Headache [Unknown]
  - Nausea [Unknown]

NARRATIVE: CASE EVENT DATE: 20241202
